FAERS Safety Report 8298116-5 (Version None)
Quarter: 2012Q2

REPORT INFORMATION
  Report Type: 
  Country: None (occurrence: None)
  Receive Date: 20120419
  Receipt Date: 20120405
  Transmission Date: 20120825
  Serious: Yes (Hospitalization)
  Sender: FDA-Public Use
  Company Number: DE-ROCHE-1040420

PATIENT
  Sex: Female
  Weight: 63 kg

DRUGS (12)
  1. ERGOCALCIFEROL [Concomitant]
     Dosage: 1000 UI
     Dates: start: 20110505
  2. POTASSIUM CHLORIDE [Concomitant]
     Dates: start: 20120110
  3. RAMIPRIL [Concomitant]
     Dates: start: 20120110
  4. DEXAMETHASONE SODIUM PHOSPHATE [Concomitant]
     Dates: start: 20120209
  5. JANUVIA [Concomitant]
     Dates: start: 20120110
  6. PANTOPRAZOLE [Concomitant]
     Dates: start: 20110505
  7. VEMURAFENIB [Suspect]
     Indication: MALIGNANT MELANOMA
     Dosage: LAST DOSE PRIOR TO SAE 14/FEB/2012
     Route: 048
     Dates: start: 20120125, end: 20120215
  8. VEMURAFENIB [Suspect]
     Dates: start: 20120217
  9. VALPROATE SODIUM [Concomitant]
     Dates: start: 20120110
  10. METFORMIN HCL [Concomitant]
     Dates: start: 20111204, end: 20120217
  11. VEMURAFENIB [Suspect]
     Route: 048
     Dates: end: 20120404
  12. HYDROCHLOROTHIAZIDE [Concomitant]
     Dates: start: 20120110

REACTIONS (1)
  - RENAL FAILURE [None]
